FAERS Safety Report 8907521 (Version 9)
Quarter: 2014Q4

REPORT INFORMATION
  Report Type: Report from Study
  Country: PL (occurrence: PL)
  Receive Date: 20121113
  Receipt Date: 20141013
  Transmission Date: 20150529
  Serious: Yes (Hospitalization)
  Sender: FDA-Public Use
  Company Number: PL-PFIZER INC-2012134323

PATIENT
  Age: 41 Year
  Sex: Male
  Weight: 98 kg

DRUGS (12)
  1. EUTHYROX [Concomitant]
     Active Substance: LEVOTHYROXINE SODIUM
     Indication: SUPPLEMENTATION THERAPY
     Dosage: UNK
     Dates: start: 2009
  2. KETONAL [Suspect]
     Active Substance: KETOPROFEN
     Dosage: UNK
  3. MAGLEK B6 [Concomitant]
     Indication: SUPPLEMENTATION THERAPY
     Dosage: UNK
     Dates: start: 2006, end: 20120603
  4. GASTROLIT [Concomitant]
     Indication: SUPPLEMENTATION THERAPY
     Dosage: UNK
     Dates: start: 20120601, end: 20120603
  5. PERFALGAN [Suspect]
     Active Substance: ACETAMINOPHEN
     Dosage: UNK
  6. STOPPERAN [Concomitant]
     Indication: DIARRHOEA
     Dosage: UNK
     Dates: start: 20120601, end: 20120603
  7. BOSUTINIB [Suspect]
     Active Substance: BOSUTINIB
     Indication: CONGENITAL CYSTIC KIDNEY DISEASE
     Dosage: MOST RECENT DOSE BEFORE THE EVENT: 2X2 TBL
     Route: 048
     Dates: start: 20120525, end: 20120603
  8. POLPRIL [Suspect]
     Active Substance: RAMIPRIL
     Indication: HYPERTENSION
     Dosage: 5 MG, 1X1TBL
     Route: 048
     Dates: start: 2006
  9. HEPATIL [Concomitant]
     Indication: PROPHYLAXIS
     Dosage: UNK
     Dates: start: 2006, end: 20120603
  10. ORTRANOL [Concomitant]
     Indication: PROPHYLAXIS
     Dosage: UNK
     Dates: start: 2006, end: 20120603
  11. KALDIUM [Concomitant]
     Indication: SUPPLEMENTATION THERAPY
     Dosage: UNK
     Dates: start: 2006, end: 20120603
  12. PRITOR PLUS [Suspect]
     Active Substance: TELMISARTAN
     Indication: HYPERTENSION
     Dosage: 80 MG, 1X1 TBL
     Route: 048
     Dates: start: 2006

REACTIONS (4)
  - Acute kidney injury [Recovered/Resolved]
  - Pancreatic enzyme abnormality [Recovered/Resolved]
  - Hepatitis acute [Recovered/Resolved]
  - Gastroenteritis [Recovering/Resolving]

NARRATIVE: CASE EVENT DATE: 20120603
